FAERS Safety Report 25314302 (Version 1)
Quarter: 2025Q2

REPORT INFORMATION
  Report Type: Spontaneous
  Country: IT (occurrence: IT)
  Receive Date: 20250514
  Receipt Date: 20250514
  Transmission Date: 20250716
  Serious: Yes (Other)
  Sender: AMGEN
  Company Number: IT-AMGEN-ITASP2025091183

PATIENT

DRUGS (2)
  1. BEVACIZUMAB [Suspect]
     Active Substance: BEVACIZUMAB
     Indication: Neovascular age-related macular degeneration
     Dosage: UNK UNK, QMO (THREE INITIAL MONTHLY INJECTIONS)
  2. BEVACIZUMAB [Suspect]
     Active Substance: BEVACIZUMAB
     Dosage: UNK UNK, Q2WK (BIMONTHLY MAINTENANCE DOSES)

REACTIONS (8)
  - Vitreous detachment [Unknown]
  - Cataract [Unknown]
  - Neovascular age-related macular degeneration [Unknown]
  - Embolism [Unknown]
  - Conjunctival haemorrhage [Unknown]
  - Intraocular pressure increased [Unknown]
  - Off label use [Unknown]
  - Drug effective for unapproved indication [Unknown]
